FAERS Safety Report 7642948-0 (Version None)
Quarter: 2011Q3

REPORT INFORMATION
  Report Type: 
  Country: None (occurrence: None)
  Receive Date: 20110728
  Receipt Date: 20110714
  Transmission Date: 20111222
  Serious: Yes (Hospitalization)
  Sender: FDA-Public Use
  Company Number: IT-BAYER-2011-056872

PATIENT
  Age: 80 Year
  Sex: Male

DRUGS (11)
  1. ALUMINUM HYDROXIDE [Concomitant]
     Route: 048
  2. PREDNISONE [Concomitant]
     Dosage: DAILY DOSE 25 MG
     Route: 048
  3. TRAZODONE HCL [Suspect]
     Indication: DEPRESSION
     Dosage: DAILY DOSE 1 DF
     Route: 048
     Dates: start: 20110602, end: 20110622
  4. FOSAMAX [Concomitant]
     Route: 048
  5. ASPIRIN [Suspect]
     Indication: ACUTE MYOCARDIAL INFARCTION
     Dosage: 100 MG, QD
     Route: 048
     Dates: start: 20101201, end: 20110622
  6. ZESTRIL [Concomitant]
     Route: 048
  7. CEBION [Concomitant]
     Route: 048
  8. AVODART [Concomitant]
     Route: 048
  9. FLUIFORT [Concomitant]
     Route: 048
  10. DICLOFENAC SODIUM [Suspect]
     Indication: RHEUMATOID ARTHRITIS
     Dosage: DAILY DOSE 1 DF
     Route: 048
     Dates: start: 20110301, end: 20110301
  11. MINITRAN [Concomitant]
     Route: 062

REACTIONS (3)
  - PURPURA [None]
  - GENERALISED ERYTHEMA [None]
  - SKIN EXFOLIATION [None]
